FAERS Safety Report 15703311 (Version 1)
Quarter: 2018Q4

REPORT INFORMATION
  Report Type: Spontaneous
  Country: AU (occurrence: AU)
  Receive Date: 20181210
  Receipt Date: 20181210
  Transmission Date: 20190205
  Serious: Yes (Other)
  Sender: FDA-Public Use
  Company Number: AU-BRISTOL-MYERS SQUIBB COMPANY-BMS-2018-112644

PATIENT
  Age: 10 Year
  Sex: Male

DRUGS (3)
  1. ETOPOSIDE PHOSPHATE [Suspect]
     Active Substance: ETOPOSIDE PHOSPHATE
     Indication: PRODUCT USED FOR UNKNOWN INDICATION
     Dosage: 140 MG, UNK
     Route: 042
     Dates: start: 20180521
  2. BAXTER SALINE [Suspect]
     Active Substance: SODIUM CHLORIDE
     Indication: PRODUCT USED FOR UNKNOWN INDICATION
     Dosage: UNK
     Route: 042
     Dates: start: 20180521
  3. BAXTER COMPOUND SODIUM LACTATE (HARTMANN^S SOLUTION) 1000ML INJECTION [Suspect]
     Active Substance: CALCIUM CHLORIDE\POTASSIUM CHLORIDE\SODIUM CHLORIDE\SODIUM LACTATE
     Indication: PRODUCT USED FOR UNKNOWN INDICATION
     Dosage: UNK
     Route: 042
     Dates: start: 20180521

REACTIONS (7)
  - Erythema [Unknown]
  - Rash [Unknown]
  - Dyspnoea [Recovered/Resolved with Sequelae]
  - Chest pain [Unknown]
  - Flushing [Recovered/Resolved with Sequelae]
  - Headache [Unknown]
  - Throat tightness [Recovered/Resolved with Sequelae]

NARRATIVE: CASE EVENT DATE: 20180608
